FAERS Safety Report 4311048-X (Version None)
Quarter: 2004Q1

REPORT INFORMATION
  Report Type: 
  Country: None (occurrence: None)
  Receive Date: 20040302
  Receipt Date: 20040223
  Transmission Date: 20041129
  Serious: Yes (Hospitalization)
  Sender: FDA-Public Use
  Company Number: US-JNJFOC-20040205946

PATIENT
  Age: 61 Year
  Sex: Female

DRUGS (12)
  1. INFLIXIMAB (INFLIXIMAB, RECOMBINANT) LYOPHILIZED POWDER [Suspect]
     Indication: RHEUMATOID ARTHRITIS
     Dosage: SEE IMAGE
     Route: 042
     Dates: start: 20010918
  2. INFLIXIMAB (INFLIXIMAB, RECOMBINANT) LYOPHILIZED POWDER [Suspect]
     Indication: RHEUMATOID ARTHRITIS
     Dosage: SEE IMAGE
     Route: 042
     Dates: start: 20030415
  3. CERTIA (ACETYLSALICYLIC ACID) [Concomitant]
  4. NITROGLYCERIN [Concomitant]
  5. POTASSIUM (POTASSIUM) [Concomitant]
  6. ARTHROTEC [Concomitant]
  7. PREDNISONE [Concomitant]
  8. METHOTREXATE [Concomitant]
  9. DARVOCET (PROPACET) [Concomitant]
  10. PREMARIN [Concomitant]
  11. LASIX [Concomitant]
  12. GEMFIBROZIL [Concomitant]

REACTIONS (1)
  - GASTRITIS [None]
